FAERS Safety Report 24036300 (Version 1)
Quarter: 2024Q2

REPORT INFORMATION
  Report Type: Spontaneous
  Country: US (occurrence: None)
  Receive Date: 20240628
  Receipt Date: 20240628
  Transmission Date: 20240716
  Serious: No
  Sender: FDA-Public Use
  Company Number: None

PATIENT
  Sex: Female

DRUGS (7)
  1. SPRYCEL [Suspect]
     Active Substance: DASATINIB
     Indication: Myeloid leukaemia
     Dosage: FREQ: TAKE 1 TABLET BY MOUTH EVERY DAY
     Route: 048
     Dates: start: 20200103
  2. IBUPROFEN [Suspect]
     Active Substance: IBUPROFEN
  3. AZITHROMYCIN [Concomitant]
  4. KETOROLAC [Concomitant]
  5. METHYLPR [Concomitant]
  6. METOCLOPRAM [Concomitant]
  7. POLYETHYLENE GLYCOL [Concomitant]
     Active Substance: POLYETHYLENE GLYCOL

REACTIONS (3)
  - Drug hypersensitivity [None]
  - Chronic kidney disease [None]
  - Therapy interrupted [None]
